FAERS Safety Report 11981276 (Version 2)
Quarter: 2016Q1

REPORT INFORMATION
  Report Type: Other
  Country: FR (occurrence: FR)
  Receive Date: 20160129
  Receipt Date: 20160203
  Transmission Date: 20160526
  Serious: Yes (Hospitalization)
  Sender: FDA-Public Use
  Company Number: FR-PIERRE FABRE-1047128

PATIENT
  Age: 69 Year
  Sex: Male

DRUGS (12)
  1. OMEXEL [Concomitant]
     Active Substance: TAMSULOSIN HYDROCHLORIDE
  2. AMLODIPINE [Concomitant]
     Active Substance: AMLODIPINE BESYLATE
  3. AMIODARONE HYDROCHLORIDE. [Concomitant]
     Active Substance: AMIODARONE HYDROCHLORIDE
  4. KARDEGIC [Concomitant]
     Active Substance: ASPIRIN LYSINE
  5. OGASTORO [Concomitant]
     Active Substance: LANSOPRAZOLE
  6. TAHOR [Concomitant]
     Active Substance: ATORVASTATIN CALCIUM
  7. AVODART [Concomitant]
     Active Substance: DUTASTERIDE
  8. BISOPROLOL FUMARATE. [Concomitant]
     Active Substance: BISOPROLOL FUMARATE
  9. NAVELBINE [Suspect]
     Active Substance: VINORELBINE TARTRATE
     Indication: PRODUCT USED FOR UNKNOWN INDICATION
     Route: 042
     Dates: start: 20151208, end: 20151208
  10. CISPLATIN. [Suspect]
     Active Substance: CISPLATIN
     Route: 042
     Dates: start: 20151208, end: 20151208
  11. CISPLATIN. [Suspect]
     Active Substance: CISPLATIN
     Route: 042
     Dates: start: 20151208, end: 20151208
  12. PAROXETINE [Concomitant]
     Active Substance: PAROXETINE\PAROXETINE HYDROCHLORIDE

REACTIONS (7)
  - Asthenia [Unknown]
  - Vomiting [Recovered/Resolved]
  - Disturbance in attention [None]
  - Memory impairment [Unknown]
  - Hyponatraemia [Recovered/Resolved]
  - Headache [None]
  - Nausea [None]

NARRATIVE: CASE EVENT DATE: 201512
